FAERS Safety Report 26216807 (Version 1)
Quarter: 2025Q4

REPORT INFORMATION
  Report Type: Spontaneous
  Country: CA (occurrence: CA)
  Receive Date: 20251231
  Receipt Date: 20251231
  Transmission Date: 20260117
  Serious: Yes (Other)
  Sender: CSL BEHRING
  Company Number: CA-BEH-2025230234

PATIENT
  Age: 77 Year
  Sex: Female

DRUGS (29)
  1. FIBRINOGEN HUMAN [Suspect]
     Active Substance: FIBRINOGEN HUMAN
     Indication: Product used for unknown indication
     Dosage: UNK
     Route: 065
  2. ACTOS [Suspect]
     Active Substance: PIOGLITAZONE HYDROCHLORIDE
     Indication: Product used for unknown indication
     Dosage: UNK
     Route: 065
  3. ALOGLIPTIN BENZOATE\METFORMIN HYDROCHLORIDE [Suspect]
     Active Substance: ALOGLIPTIN BENZOATE\METFORMIN HYDROCHLORIDE
     Indication: Product used for unknown indication
     Dosage: UNK
     Route: 065
  4. ALOGLIPTIN BENZOATE [Suspect]
     Active Substance: ALOGLIPTIN BENZOATE
     Indication: Product used for unknown indication
     Dosage: UNK
     Route: 065
  5. ALVESCO [Suspect]
     Active Substance: CICLESONIDE
     Indication: Product used for unknown indication
     Dosage: UNK
     Route: 055
  6. APROTININ [Suspect]
     Active Substance: APROTININ
     Indication: Product used for unknown indication
     Dosage: UNK
     Route: 065
  7. CALCIUM CHLORIDE [Suspect]
     Active Substance: CALCIUM CHLORIDE
     Indication: Product used for unknown indication
     Dosage: UNK
     Route: 065
  8. FIBRINOGEN [Suspect]
     Active Substance: FIBRINOGEN HUMAN
     Indication: Product used for unknown indication
     Dosage: UNK
     Route: 065
  9. FACTOR XIII CONCENTRATE (HUMAN) [Suspect]
     Active Substance: FACTOR XIII CONCENTRATE (HUMAN)
     Indication: Product used for unknown indication
     Dosage: UNK
     Route: 065
  10. THROMBIN [Suspect]
     Active Substance: THROMBIN
     Indication: Product used for unknown indication
     Dosage: UNK
     Route: 065
  11. CICLESONIDE [Suspect]
     Active Substance: CICLESONIDE
     Indication: Product used for unknown indication
     Dosage: UNK
     Route: 065
  12. ROFLUMILAST [Suspect]
     Active Substance: ROFLUMILAST
     Indication: Product used for unknown indication
     Route: 065
  13. DEXILANT [Suspect]
     Active Substance: DEXLANSOPRAZOLE
     Indication: Product used for unknown indication
     Dosage: UNK
     Route: 065
  14. EDARBYCLOR [Suspect]
     Active Substance: AZILSARTAN KAMEDOXOMIL\CHLORTHALIDONE
     Indication: Product used for unknown indication
     Route: 065
  15. ENTYVIO [Suspect]
     Active Substance: VEDOLIZUMAB
     Indication: Colitis ulcerative
     Dosage: 300 MG
     Route: 042
  16. FEBUXOSTAT [Suspect]
     Active Substance: FEBUXOSTAT
     Indication: Product used for unknown indication
     Dosage: UNK
     Route: 065
  17. OMNARIS [Suspect]
     Active Substance: CICLESONIDE
     Indication: Product used for unknown indication
     Dosage: 50 MG
     Route: 065
  18. ONDANSETRON HYDROCHLORIDE [Suspect]
     Active Substance: ONDANSETRON HYDROCHLORIDE
     Indication: Product used for unknown indication
     Dosage: UNK
     Route: 065
  19. PANTOPRAZOLE SODIUM [Suspect]
     Active Substance: PANTOPRAZOLE SODIUM
     Indication: Product used for unknown indication
     Dosage: UNK
     Route: 065
  20. PIOGLITAZONE [Suspect]
     Active Substance: PIOGLITAZONE
     Indication: Product used for unknown indication
     Route: 065
  21. PANTOPRAZOLE MAGNESIUM [Suspect]
     Active Substance: PANTOPRAZOLE MAGNESIUM
     Indication: Product used for unknown indication
     Dosage: UNK
     Route: 065
  22. ULORIC [Suspect]
     Active Substance: FEBUXOSTAT
     Indication: Product used for unknown indication
     Dosage: UNK
     Route: 065
  23. Rofact [Concomitant]
  24. CELECOXIB [Concomitant]
     Active Substance: CELECOXIB
  25. MICARDIS [Concomitant]
     Active Substance: TELMISARTAN
  26. LEVOTHYROXINE [Concomitant]
     Active Substance: LEVOTHYROXINE
  27. TACROLIMUS [Concomitant]
     Active Substance: TACROLIMUS
  28. ALLOPURINOL [Concomitant]
     Active Substance: ALLOPURINOL
  29. ROCALTROL [Concomitant]
     Active Substance: CALCITRIOL

REACTIONS (8)
  - Anxiety [Recovered/Resolved]
  - Blood pressure increased [Recovered/Resolved]
  - Body temperature decreased [Recovered/Resolved]
  - Disease recurrence [Recovered/Resolved]
  - Heart rate increased [Recovered/Resolved]
  - Hypertension [Recovered/Resolved]
  - Pneumonia [Recovered/Resolved]
  - Poor venous access [Recovered/Resolved]
